FAERS Safety Report 11099743 (Version 2)
Quarter: 2015Q2

REPORT INFORMATION
  Report Type: Spontaneous
  Country: US (occurrence: US)
  Receive Date: 20150508
  Receipt Date: 20150526
  Transmission Date: 20150821
  Serious: No
  Sender: FDA-Public Use
  Company Number: US-LEO PHARMA-233888

PATIENT
  Age: 70 Year
  Sex: Female

DRUGS (1)
  1. PICATO [Suspect]
     Active Substance: INGENOL MEBUTATE
     Indication: ACTINIC KERATOSIS
     Dates: start: 20150322, end: 20150322

REACTIONS (4)
  - Application site exfoliation [Unknown]
  - Application site pain [Unknown]
  - Application site scab [Unknown]
  - Incorrect drug administration duration [Unknown]
